FAERS Safety Report 5339229-7 (Version None)
Quarter: 2007Q2

REPORT INFORMATION
  Report Type: 
  Country: None (occurrence: None)
  Receive Date: 20070329
  Receipt Date: 20070125
  Transmission Date: 20071010
  Serious: Yes (Other)
  Sender: FDA-Public Use
  Company Number: A03200700728

PATIENT
  Age: 75 Year
  Sex: Male

DRUGS (8)
  1. AMBIEN [Suspect]
     Indication: INSOMNIA
     Dosage: 12.5 MG HS - ORAL
     Route: 048
  2. WARFARIN SODIUM [Concomitant]
  3. FLECAINIDE ACETATE [Concomitant]
  4. DILTIAZEM HYDROCHLORIDE [Concomitant]
  5. DIGITALIS TAB [Concomitant]
  6. ACETYLSALICYLIC ACID SRT [Concomitant]
  7. TIOTROPIUM BROMIDE [Concomitant]
  8. BECLOMETHASONE DIPROPIONATE [Concomitant]

REACTIONS (3)
  - ABNORMAL BEHAVIOUR [None]
  - HALLUCINATION [None]
  - SLEEP WALKING [None]
